FAERS Safety Report 8004756-0 (Version None)
Quarter: 2011Q4

REPORT INFORMATION
  Report Type: 
  Country: None (occurrence: None)
  Receive Date: 20111223
  Receipt Date: 20111220
  Transmission Date: 20120403
  Serious: Yes (Death)
  Sender: FDA-Public Use
  Company Number: HU-BRISTOL-MYERS SQUIBB COMPANY-16306474

PATIENT
  Age: 55 Year
  Sex: Male

DRUGS (2)
  1. FLUOROURACIL [Suspect]
     Indication: GASTRIC CANCER
     Dosage: INTER ON 4DEC11
     Route: 041
  2. CISPLATIN [Suspect]
     Indication: GASTRIC CANCER
     Route: 041

REACTIONS (1)
  - CYTOTOXIC CARDIOMYOPATHY [None]
